FAERS Safety Report 9158527 (Version 1)
Quarter: 2013Q1

REPORT INFORMATION
  Report Type: Spontaneous
  Country: US (occurrence: US)
  Receive Date: 20130312
  Receipt Date: 20130312
  Transmission Date: 20140127
  Serious: Yes (Death)
  Sender: FDA-Public Use
  Company Number: CHPA2013US004305

PATIENT
  Age: 69 Year
  Sex: Male

DRUGS (2)
  1. MAALOX ANTACID [Suspect]
     Indication: DYSPEPSIA
     Dosage: 2 DF, PRN
     Route: 048
  2. MAALOX ANTACID [Suspect]
     Indication: DYSPEPSIA

REACTIONS (1)
  - Road traffic accident [Fatal]
